FAERS Safety Report 6969959-2 (Version None)
Quarter: 2010Q3

REPORT INFORMATION
  Report Type: 
  Country: None (occurrence: None)
  Receive Date: 20100823
  Receipt Date: 20100519
  Transmission Date: 20110219
  Serious: No
  Sender: FDA-Public Use
  Company Number: 012194

PATIENT
  Sex: Male

DRUGS (1)
  1. CIMZIA [Suspect]
     Indication: CROHN'S DISEASE
     Dosage: (400 MG 1X/2 WEEKS SUBCUTANEOUS)
     Route: 058
     Dates: start: 20091023

REACTIONS (4)
  - GASTROINTESTINAL MOTILITY DISORDER [None]
  - NAUSEA [None]
  - RECTAL ULCER [None]
  - SEASONAL ALLERGY [None]
